FAERS Safety Report 17094827 (Version 3)
Quarter: 2019Q4

REPORT INFORMATION
  Report Type: Report from Study
  Country: GB (occurrence: GB)
  Receive Date: 20191130
  Receipt Date: 20191216
  Transmission Date: 20200122
  Serious: Yes (Other)
  Sender: FDA-Public Use
  Company Number: GB-AUROBINDO-AUR-APL-2019-075667

PATIENT
  Age: 53 Year

DRUGS (9)
  1. RIBAVIRIN TABLET [Suspect]
     Active Substance: RIBAVIRIN
     Indication: GASTROENTERITIS NOROVIRUS
     Dosage: UNK
     Route: 065
  2. NITAZOXANIDE [Concomitant]
     Active Substance: NITAZOXANIDE
     Indication: INFECTION
     Dosage: UNK
     Route: 065
  3. PREDNISOLONE. [Suspect]
     Active Substance: PREDNISOLONE
     Indication: IMMUNOSUPPRESSION
     Dosage: UNK
     Route: 065
  4. RIBAVIRIN CAPSULE [Suspect]
     Active Substance: RIBAVIRIN
     Indication: INFECTION
     Dosage: 400 MILLIGRAM, ONCE A DAY,QPM (TITRATED ACCORDING TO SERUM LEVELS)
     Route: 048
  5. RIBAVIRIN CAPSULE [Suspect]
     Active Substance: RIBAVIRIN
     Indication: GASTROENTERITIS NOROVIRUS
     Dosage: 200 MILLIGRAM, ONCE A DAY,QAM (TITRATED ACCORDING TO SERUM LEVELS)
     Route: 048
  6. MYCOPHENOLATE MOFETIL. [Suspect]
     Active Substance: MYCOPHENOLATE MOFETIL
     Indication: IMMUNOSUPPRESSION
     Dosage: UNK
     Route: 065
  7. RITUXIMAB. [Suspect]
     Active Substance: RITUXIMAB
     Indication: IMMUNODEFICIENCY COMMON VARIABLE
     Dosage: UNK
     Route: 065
  8. PREDNISOLONE. [Suspect]
     Active Substance: PREDNISOLONE
     Indication: IMMUNODEFICIENCY COMMON VARIABLE
  9. NITAZOXANIDE [Concomitant]
     Active Substance: NITAZOXANIDE
     Indication: GASTROENTERITIS NOROVIRUS

REACTIONS (3)
  - Gastroenteritis norovirus [Not Recovered/Not Resolved]
  - Anaemia [Unknown]
  - Product use in unapproved indication [Unknown]
